FAERS Safety Report 25715672 (Version 1)
Quarter: 2025Q3

REPORT INFORMATION
  Report Type: Spontaneous
  Country: BR (occurrence: BR)
  Receive Date: 20250822
  Receipt Date: 20250822
  Transmission Date: 20251020
  Serious: No
  Sender: ANI
  Company Number: BR-ANIPHARMA-024193

PATIENT
  Sex: Female

DRUGS (1)
  1. FLUVOXAMINE MALEATE [Suspect]
     Active Substance: FLUVOXAMINE MALEATE
     Indication: Anxiety

REACTIONS (2)
  - Anxiety [Unknown]
  - Product substitution issue [Unknown]
